FAERS Safety Report 10740845 (Version 1)
Quarter: 2015Q1

REPORT INFORMATION
  Report Type: Spontaneous
  Country: US (occurrence: None)
  Receive Date: 20150123
  Receipt Date: 20150123
  Transmission Date: 20150721
  Serious: Yes (Life-Threatening, Hospitalization)
  Sender: FDA-Public Use
  Company Number: None

PATIENT
  Age: 29 Year
  Sex: Female
  Weight: 46 kg

DRUGS (3)
  1. NIFEDIPINE. [Suspect]
     Active Substance: NIFEDIPINE
     Indication: UTERINE CONTRACTIONS ABNORMAL
     Dosage: 10 MG EVERY 20 MINUTES ORAL
     Route: 048
     Dates: start: 20141023
  2. BETAMETHASONE ACETATE-SODIUM PHOSPHATE [Concomitant]
  3. AMPICILLIN 10/23 [Concomitant]

REACTIONS (1)
  - Blood pressure decreased [None]

NARRATIVE: CASE EVENT DATE: 20141023
